FAERS Safety Report 24110335 (Version 1)
Quarter: 2024Q3

REPORT INFORMATION
  Report Type: Spontaneous
  Country: NL (occurrence: NL)
  Receive Date: 20240718
  Receipt Date: 20240718
  Transmission Date: 20241016
  Serious: Yes (Other)
  Sender: CURRAX PHARMACEUTICALS
  Company Number: None

PATIENT
  Age: 54 Year
  Sex: Female
  Weight: 104 kg

DRUGS (1)
  1. BUPROPION HYDROCHLORIDE\NALTREXONE HYDROCHLORIDE [Suspect]
     Active Substance: BUPROPION HYDROCHLORIDE\NALTREXONE HYDROCHLORIDE
     Indication: Weight control
     Dosage: STRENGTH: 8/90 MG, 1X PER DAY 1 PIECE [I.E.1 DOSAGE FORM]
     Route: 065
     Dates: start: 20240610

REACTIONS (6)
  - Depressed level of consciousness [Recovering/Resolving]
  - Hot flush [Not Recovered/Not Resolved]
  - Fatigue [Recovering/Resolving]
  - Dry mouth [Recovering/Resolving]
  - Nausea [Recovering/Resolving]
  - Hyperhidrosis [Not Recovered/Not Resolved]

NARRATIVE: CASE EVENT DATE: 20240601
